FAERS Safety Report 24095425 (Version 1)
Quarter: 2024Q3

REPORT INFORMATION
  Report Type: Spontaneous
  Country: US (occurrence: US)
  Receive Date: 20240716
  Receipt Date: 20240716
  Transmission Date: 20241016
  Serious: No
  Sender: AUROBINDO
  Company Number: US-AUROBINDO-AUR-APL-2024-017631

PATIENT

DRUGS (1)
  1. ZALEPLON [Suspect]
     Active Substance: ZALEPLON
     Indication: Insomnia
     Dosage: UNK
     Route: 065

REACTIONS (3)
  - Drug ineffective [Unknown]
  - Product formulation issue [Unknown]
  - Product substitution issue [Unknown]
